FAERS Safety Report 8270243-8 (Version None)
Quarter: 2012Q2

REPORT INFORMATION
  Report Type: 
  Country: None (occurrence: None)
  Receive Date: 20120405
  Receipt Date: 20120327
  Transmission Date: 20120825
  Serious: Yes (Other)
  Sender: FDA-Public Use
  Company Number: IMP_05821_2012

PATIENT
  Age: 28 Year
  Sex: Male

DRUGS (1)
  1. OXYBUTYNIN [Suspect]
     Indication: EUPHORIC MOOD
     Dosage: (5 MG QD,) (250-500 MG DAILY (50-100 PILLS)

REACTIONS (8)
  - ANXIETY [None]
  - DEPRESSION [None]
  - FAMILY STRESS [None]
  - HYPERHIDROSIS [None]
  - DRUG DEPENDENCE [None]
  - HALLUCINATION [None]
  - WITHDRAWAL SYNDROME [None]
  - LOGORRHOEA [None]
